FAERS Safety Report 15106143 (Version 2)
Quarter: 2018Q3

REPORT INFORMATION
  Report Type: Spontaneous
  Country: DE (occurrence: DE)
  Receive Date: 20180704
  Receipt Date: 20180807
  Transmission Date: 20181010
  Serious: Yes (Hospitalization, Other)
  Sender: FDA-Public Use
  Company Number: DE-009507513-1807DEU000647

PATIENT
  Sex: Male
  Weight: 83 kg

DRUGS (2)
  1. KEYTRUDA [Suspect]
     Active Substance: PEMBROLIZUMAB
     Dosage: 2 MG/KG/BODY WEIGHT (166 MG), EVERY THREE WEEKS
     Dates: start: 201702
  2. KEYTRUDA [Suspect]
     Active Substance: PEMBROLIZUMAB
     Indication: METASTATIC MALIGNANT MELANOMA
     Dosage: 2 MG/KG/BODY WEIGHT (166 MG), EVERY THREE WEEKS
     Dates: start: 20160113, end: 201701

REACTIONS (12)
  - Nausea [Unknown]
  - Hypopituitarism [Unknown]
  - Blood thyroid stimulating hormone increased [Recovered/Resolved]
  - Hypothalamo-pituitary disorder [Unknown]
  - Dehydroepiandrosterone decreased [Unknown]
  - Dizziness [Unknown]
  - Hypophysitis [Recovered/Resolved with Sequelae]
  - Hypermagnesaemia [Unknown]
  - General physical health deterioration [Unknown]
  - Blood corticotrophin decreased [Unknown]
  - Hyperglycaemia [Unknown]
  - Cortisol decreased [Unknown]

NARRATIVE: CASE EVENT DATE: 20161221
